FAERS Safety Report 14658194 (Version 1)
Quarter: 2018Q1

REPORT INFORMATION
  Report Type: Spontaneous
  Country: US (occurrence: US)
  Receive Date: 20180320
  Receipt Date: 20180320
  Transmission Date: 20180509
  Serious: Yes (Other)
  Sender: FDA-Public Use
  Company Number: US-IROKO PHARMACEUTICALS LLC-US-I09001-18-00029

PATIENT
  Age: 63 Year
  Sex: Male

DRUGS (1)
  1. DICLOFENAC AMBIGUOUS [Suspect]
     Active Substance: DICLOFENAC
     Indication: OSTEOARTHRITIS
     Route: 065

REACTIONS (8)
  - Colectomy [Unknown]
  - Gastrointestinal dilation procedure [Unknown]
  - Gastric ulcer [Recovered/Resolved]
  - Microcytic anaemia [Recovered/Resolved]
  - Large intestinal stenosis [Recovered/Resolved]
  - Intentional product misuse [Unknown]
  - Abnormal loss of weight [Recovered/Resolved]
  - Large intestinal ulcer [Recovered/Resolved]
